FAERS Safety Report 19606832 (Version 4)
Quarter: 2021Q4

REPORT INFORMATION
  Report Type: Report from Study
  Country: FR (occurrence: None)
  Receive Date: 20210725
  Receipt Date: 20211203
  Transmission Date: 20220303
  Serious: Yes (Other)
  Sender: FDA-Public Use
  Company Number: FR-ROCHE-2826362

PATIENT
  Age: 43 Year
  Sex: Female

DRUGS (9)
  1. ATEZOLIZUMAB [Suspect]
     Active Substance: ATEZOLIZUMAB
     Indication: Cervix carcinoma
     Dosage: RECEIVED LAST DOSE OF ATEZOLIZUMAB IV 1200 MG FROM 25-OCT-2020 FOR A CUMULATIVE DOSAGE OF 9600 MG BE
     Route: 041
     Dates: start: 20201015, end: 20210311
  2. XANAX [Concomitant]
     Active Substance: ALPRAZOLAM
     Dates: end: 20210305
  3. ACETAMINOPHEN [Concomitant]
     Active Substance: ACETAMINOPHEN
     Dosage: ALD
  4. MAGNE B6 [Concomitant]
     Active Substance: MAGNESIUM\PYRIDOXINE
     Dates: start: 20210305
  5. SEDATIF PC [Concomitant]
     Active Substance: HOMEOPATHICS
     Dosage: 2 IN THE MORNING, 1 IN THE AFTERNOON
     Dates: start: 20210306
  6. CISPLATIN [Concomitant]
     Active Substance: CISPLATIN
  7. IUD NOS [Concomitant]
     Active Substance: COPPER OR LEVONORGESTREL
  8. PREDNISOLONE SODIUM METAZOATE [Concomitant]
     Active Substance: PREDNISOLONE SODIUM METAZOATE
     Dosage: 1 MG/ML
     Route: 048
     Dates: start: 20210401, end: 20210614
  9. PREDNISOLONE [Concomitant]
     Active Substance: PREDNISOLONE
     Route: 048
     Dates: start: 20210401, end: 20210614

REACTIONS (2)
  - Proctitis [Recovered/Resolved]
  - Adrenal insufficiency [Recovered/Resolved with Sequelae]

NARRATIVE: CASE EVENT DATE: 20210318
